FAERS Safety Report 9514065 (Version 1)
Quarter: 2013Q3

REPORT INFORMATION
  Report Type: Spontaneous
  Country: US (occurrence: US)
  Receive Date: 20130910
  Receipt Date: 20130910
  Transmission Date: 20140515
  Serious: No
  Sender: FDA-Public Use
  Company Number: US-009507513-1309USA002609

PATIENT
  Age: 72 Year
  Sex: Male

DRUGS (2)
  1. DULERA [Suspect]
     Indication: CHRONIC OBSTRUCTIVE PULMONARY DISEASE
     Dosage: 100 MCG/5 MCG/4PUFFS DAILY
     Route: 055
     Dates: start: 201303
  2. VENTOLIN (ALBUTEROL SULFATE) [Concomitant]

REACTIONS (1)
  - Dyspnoea [Recovering/Resolving]
